FAERS Safety Report 5089410-X (Version None)
Quarter: 2006Q3

REPORT INFORMATION
  Report Type: 
  Country: None (occurrence: None)
  Receive Date: 20060825
  Receipt Date: 20060720
  Transmission Date: 20061208
  Serious: Yes (Other)
  Sender: FDA-Public Use
  Company Number: JP-MERCK-0608USA01561

PATIENT
  Age: 63 Year
  Sex: Female
  Weight: 46 kg

DRUGS (10)
  1. SINGULAIR [Suspect]
     Indication: ASTHMA
     Route: 048
     Dates: start: 20060704, end: 20060704
  2. [THERAPY UNSPECIFIED] [Concomitant]
     Indication: GASTRITIS
     Route: 048
     Dates: start: 19930323
  3. MEDICON [Concomitant]
     Indication: COUGH
     Route: 048
     Dates: start: 19930323
  4. DASEN [Concomitant]
     Indication: SPUTUM RETENTION
     Route: 048
     Dates: start: 19930323
  5. QVAR 40 [Concomitant]
     Indication: ASTHMA
     Route: 055
     Dates: start: 20050315
  6. SHINLUCK [Concomitant]
     Indication: CONSTIPATION
     Route: 048
     Dates: start: 20060608
  7. AMLODIN [Concomitant]
     Indication: HYPERTENSION
     Route: 048
     Dates: start: 20020423
  8. THEOLONG [Concomitant]
     Indication: ASTHMA
     Route: 048
     Dates: start: 19930323
  9. ACCOLATE [Concomitant]
     Indication: ASTHMA
     Route: 048
     Dates: start: 20040310, end: 20060630
  10. RIZE [Concomitant]
     Indication: NEUROSIS
     Route: 048
     Dates: start: 20000905

REACTIONS (1)
  - FACIAL SPASM [None]
